FAERS Safety Report 9370718 (Version 2)
Quarter: 2013Q4

REPORT INFORMATION
  Report Type: Spontaneous
  Country: FR (occurrence: FR)
  Receive Date: 20130626
  Receipt Date: 20131223
  Transmission Date: 20140711
  Serious: Yes (Hospitalization)
  Sender: FDA-Public Use
  Company Number: FR-TEVA-414029ISR

PATIENT
  Age: 79 Year
  Sex: Male

DRUGS (8)
  1. FUROSEMIDE TEVA 40 MG, [Suspect]
     Dosage: 80 MILLIGRAM DAILY;
     Route: 048
     Dates: start: 20130515, end: 20130523
  2. KARDEGIC 75 MG POWDER FOR ORAL SOLUTION IN BAGS [Concomitant]
     Dosage: 1 DOSAGE FORMS DAILY;
     Route: 048
     Dates: end: 20130523
  3. BISOPROLOL (FUMARATE) [Concomitant]
     Dosage: 240 MILLIGRAM DAILY;
     Dates: end: 20130523
  4. GLIBENCLAMIDE [Concomitant]
     Indication: TYPE 2 DIABETES MELLITUS
     Dosage: 10 MILLIGRAM DAILY;
     Route: 048
     Dates: end: 20130523
  5. STAGID 700 MG TABLET [Concomitant]
     Dosage: 2100 MILLIGRAM DAILY;
     Route: 048
     Dates: end: 20130523
  6. DISCOTRINE 10 MG / 24H TRANSDERMAL PATCH [Concomitant]
     Dosage: 1 DOSAGE FORMS DAILY; 10 MG / 24H
     Route: 061
     Dates: end: 20130523
  7. ATORVASTATINE [Concomitant]
     Dosage: 40 MILLIGRAM DAILY;
     Route: 048
     Dates: end: 20130523
  8. IRBESARTAN [Concomitant]
     Indication: HYPERTENSION
     Dosage: 75 MILLIGRAM DAILY;
     Route: 048
     Dates: end: 20130523

REACTIONS (4)
  - Fall [Unknown]
  - Subdural haematoma [Recovered/Resolved]
  - Rhabdomyolysis [Recovered/Resolved]
  - Renal failure [Unknown]
